FAERS Safety Report 10971490 (Version 1)
Quarter: 2015Q1

REPORT INFORMATION
  Report Type: Spontaneous
  Country: US (occurrence: None)
  Receive Date: 20150330
  Receipt Date: 20150330
  Transmission Date: 20150721
  Serious: Yes (Disabling)
  Sender: FDA-Public Use
  Company Number: None

PATIENT
  Age: 53 Year
  Sex: Female
  Weight: 52.16 kg

DRUGS (6)
  1. LEVOTHYROXINE [Concomitant]
     Active Substance: LEVOTHYROXINE
  2. PROBIOTICS [Concomitant]
     Active Substance: PROBIOTICS NOS
  3. CIPRO [Suspect]
     Active Substance: CIPROFLOXACIN HYDROCHLORIDE
     Indication: URINARY TRACT INFECTION
     Dosage: 1 PILL ONCE DAILY TAKEN BY MOUTH
     Route: 048
     Dates: start: 20140601, end: 20140610
  4. IVIG [Concomitant]
     Active Substance: HUMAN IMMUNOGLOBULIN G
  5. PREMPRO [Concomitant]
     Active Substance: ESTROGENS, CONJUGATED\MEDROXYPROGESTERONE ACETATE
  6. IRON [Concomitant]
     Active Substance: IRON

REACTIONS (5)
  - Muscular weakness [None]
  - Impaired work ability [None]
  - Pain in extremity [None]
  - Paraesthesia [None]
  - Activities of daily living impaired [None]

NARRATIVE: CASE EVENT DATE: 20140601
